FAERS Safety Report 8772422 (Version 1)
Quarter: 2012Q4

REPORT INFORMATION
  Report Type: 
  Country: US (occurrence: US)
  Receive Date: 20120905
  Receipt Date: 20120905
  Transmission Date: 20130627
  Serious: Yes (Hospitalization)
  Sender: FDA-Public Use
  Company Number: US-SANOFI-AVENTIS-2012SA061471

PATIENT
  Age: 64 Year
  Sex: Male

DRUGS (12)
  1. MULTAQ [Suspect]
     Indication: ATRIAL FIBRILLATION
     Route: 048
     Dates: start: 201206
  2. COREG [Concomitant]
  3. LEVOTHYROXINE [Concomitant]
  4. RANITIDINE [Concomitant]
  5. CRESTOR /UNK/ [Concomitant]
  6. LORAZEPAM [Concomitant]
  7. ASPIRIN [Concomitant]
  8. CLOPIDOGREL [Concomitant]
  9. SPIRONOLACTONE [Concomitant]
  10. LASIX [Concomitant]
  11. RANOLAZINE [Concomitant]
  12. TAMSULOSIN HYDROCHLORIDE [Concomitant]

REACTIONS (5)
  - Coronary artery occlusion [Unknown]
  - Blood pressure decreased [Unknown]
  - Nasopharyngitis [Unknown]
  - Fatigue [Not Recovered/Not Resolved]
  - Asthenia [Not Recovered/Not Resolved]
